FAERS Safety Report 9254097 (Version 1)
Quarter: 2013Q2

REPORT INFORMATION
  Report Type: Spontaneous
  Country: US (occurrence: None)
  Receive Date: 20130419
  Receipt Date: 20130419
  Transmission Date: 20140414
  Serious: Yes (Hospitalization)
  Sender: FDA-Public Use
  Company Number: TPA2013A02833

PATIENT
  Age: 83 Year
  Sex: Female

DRUGS (8)
  1. ADENURIC (FEBUXOSTAT) [Suspect]
     Indication: GOUT
     Dates: start: 20130207
  2. COLCHIMAX [Suspect]
     Indication: GOUT
     Dates: start: 20130207
  3. INEXIUM (ESOMEPRAZOLE MAGNESIUM) [Concomitant]
  4. ZOCOR (SIMVASTATIN) [Concomitant]
  5. KARDEGIC (ACETYLSALICYLATE LYSINE) [Concomitant]
  6. DAONIL (GLIBENCLAMIDE) [Concomitant]
  7. METFORMIN (METFORMIN) [Concomitant]
  8. LANTUS (INSULIN GLARGINE) [Suspect]

REACTIONS (7)
  - General physical health deterioration [None]
  - Gastrointestinal disorder [None]
  - Acute prerenal failure [None]
  - Blood thyroid stimulating hormone increased [None]
  - Vomiting [None]
  - Diarrhoea [None]
  - Dehydration [None]
